FAERS Safety Report 9104270 (Version 1)
Quarter: 2013Q1

REPORT INFORMATION
  Report Type: Report from Study
  Country: IT (occurrence: IT)
  Receive Date: 20130219
  Receipt Date: 20130219
  Transmission Date: 20140127
  Serious: Yes (Hospitalization)
  Sender: FDA-Public Use
  Company Number: IT-ELI_LILLY_AND_COMPANY-IT201302002108

PATIENT
  Age: 75 Year
  Sex: Female

DRUGS (3)
  1. PEMETREXED [Suspect]
     Indication: NON-SMALL CELL LUNG CANCER
     Dosage: 880 MG, 1 IN 3 WEEKS
     Route: 042
     Dates: start: 20130115, end: 20130115
  2. CARBOPLATIN [Suspect]
     Indication: NON-SMALL CELL LUNG CANCER
     Dosage: 420 MG, 1 IN 3 WEEKS
     Route: 042
     Dates: start: 20130115, end: 20130115
  3. OTHER PHARMA COMPANY INV DRUG [Suspect]
     Indication: NON-SMALL CELL LUNG CANCER
     Dosage: UNK, 1 IN 3 WEEKS
     Route: 042
     Dates: start: 20130115

REACTIONS (1)
  - General physical health deterioration [Not Recovered/Not Resolved]
